FAERS Safety Report 5932253-2 (Version None)
Quarter: 2008Q4

REPORT INFORMATION
  Report Type: 
  Country: None (occurrence: None)
  Receive Date: 20081028
  Receipt Date: 20081022
  Transmission Date: 20090506
  Serious: Yes (Death)
  Sender: FDA-Public Use
  Company Number: AR-BRISTOL-MYERS SQUIBB COMPANY-14361430

PATIENT

DRUGS (5)
  1. ORENCIA [Suspect]
     Indication: RHEUMATOID ARTHRITIS
     Dosage: RECEIVED TOTAL OF 192 INF THERAPY DATES: 10JUL07,24JUL07,9AUG07,10SEP07
     Route: 042
     Dates: start: 20070710
  2. CORTICOSTEROID [Suspect]
     Indication: RHEUMATOID ARTHRITIS
  3. LEFLUNOMIDE [Suspect]
     Indication: RHEUMATOID ARTHRITIS
  4. MEPREDNISONE [Concomitant]
  5. METHOTREXATE [Concomitant]
     Indication: RHEUMATOID ARTHRITIS

REACTIONS (2)
  - HAEMORRHAGIC STROKE [None]
  - URINARY TRACT INFECTION [None]
